FAERS Safety Report 15126142 (Version 3)
Quarter: 2018Q3

REPORT INFORMATION
  Report Type: Report from Study
  Country: None (occurrence: NL)
  Receive Date: 20180710
  Receipt Date: 20180727
  Transmission Date: 20181010
  Serious: Yes (Hospitalization)
  Sender: FDA-Public Use
  Company Number: NL-ABBVIE-18K-114-2242133-00

PATIENT
  Sex: Male
  Weight: 92.2 kg

DRUGS (4)
  1. DUODOPA [Suspect]
     Active Substance: CARBIDOPA\LEVODOPA
     Indication: PARKINSON^S DISEASE
     Dosage: MD: 12.9, CD: 4.9, ED: 5, CND: 2.6, END: 2.5
     Route: 050
     Dates: start: 20160613, end: 2018
  2. EXELON [Concomitant]
     Active Substance: RIVASTIGMINE TARTRATE
     Indication: PRODUCT USED FOR UNKNOWN INDICATION
  3. CLOZAPINE. [Concomitant]
     Active Substance: CLOZAPINE
     Indication: PRODUCT USED FOR UNKNOWN INDICATION
  4. DUODOPA [Suspect]
     Active Substance: CARBIDOPA\LEVODOPA
     Dosage: MORNING DOSE 12.9 CONTINUOUS DOSE 5.1 EXTRA DOSE 5.0
     Route: 050
     Dates: start: 2018

REACTIONS (9)
  - Fall [Recovered/Resolved]
  - Drug effect incomplete [Not Recovered/Not Resolved]
  - Balance disorder [Not Recovered/Not Resolved]
  - Daydreaming [Not Recovered/Not Resolved]
  - Dyskinesia [Not Recovered/Not Resolved]
  - Fall [Not Recovered/Not Resolved]
  - Freezing phenomenon [Unknown]
  - Abnormal dreams [Not Recovered/Not Resolved]
  - Hallucination [Recovering/Resolving]

NARRATIVE: CASE EVENT DATE: 2018
